FAERS Safety Report 4801672-X (Version None)
Quarter: 2005Q4

REPORT INFORMATION
  Report Type: 
  Country: None (occurrence: None)
  Receive Date: 20051018
  Receipt Date: 20051003
  Transmission Date: 20060501
  Serious: Yes (Hospitalization)
  Sender: FDA-Public Use
  Company Number: GB-GILEAD-2005-0008758

PATIENT
  Age: 31 Year
  Sex: Female

DRUGS (9)
  1. VIREAD [Suspect]
     Indication: HIV INFECTION
  2. CIDOFOVIR [Suspect]
     Indication: DRUG USE FOR UNKNOWN INDICATION
  3. ZIDOVUDINE [Suspect]
     Indication: HIV INFECTION
  4. LAMIVUDINE [Suspect]
     Indication: HIV INFECTION
  5. EFAVIRENZ [Suspect]
     Indication: HIV INFECTION
  6. NEVIRAPINE [Suspect]
     Indication: HIV INFECTION
  7. DIDANOSINE [Suspect]
     Indication: HIV INFECTION
  8. CO-TRIMOXAZOLE [Concomitant]
     Indication: INFECTION PROPHYLAXIS
  9. LOPINAVIR [Concomitant]
     Indication: HIV INFECTION

REACTIONS (18)
  - BALANCE DISORDER [None]
  - BLOOD BICARBONATE DECREASED [None]
  - BLOOD IMMUNOGLOBULIN A INCREASED [None]
  - BLOOD IMMUNOGLOBULIN G INCREASED [None]
  - BLOOD IMMUNOGLOBULIN M INCREASED [None]
  - BLOOD VISCOSITY INCREASED [None]
  - DEPRESSED MOOD [None]
  - DYSARTHRIA [None]
  - FALL [None]
  - GENERAL PHYSICAL HEALTH DETERIORATION [None]
  - HEADACHE [None]
  - IMMUNE RECONSTITUTION SYNDROME [None]
  - NAUSEA [None]
  - PARALYSIS [None]
  - TUBERCULOSIS [None]
  - UPPER MOTOR NEURONE LESION [None]
  - VIRAL HEPATITIS CARRIER [None]
  - VOMITING [None]
